FAERS Safety Report 12626571 (Version 1)
Quarter: 2016Q3

REPORT INFORMATION
  Report Type: Spontaneous
  Country: BE (occurrence: BE)
  Receive Date: 20160805
  Receipt Date: 20160805
  Transmission Date: 20161109
  Serious: Yes (Other)
  Sender: FDA-Public Use
  Company Number: BE-IMPAX LABORATORIES, INC-2016-IPXL-00823

PATIENT
  Age: 40 Year
  Sex: Male

DRUGS (1)
  1. METHADONE HYDROCHLORIDE. [Suspect]
     Active Substance: METHADONE HYDROCHLORIDE
     Indication: PRODUCT USED FOR UNKNOWN INDICATION
     Dosage: UNK
     Route: 065

REACTIONS (6)
  - Acute respiratory failure [Unknown]
  - Toxicity to various agents [Unknown]
  - Leukoencephalopathy [Not Recovered/Not Resolved]
  - Lactic acidosis [Unknown]
  - Blood creatinine increased [Unknown]
  - Blood glucose abnormal [Unknown]
